FAERS Safety Report 4663933-7 (Version None)
Quarter: 2005Q2

REPORT INFORMATION
  Report Type: 
  Country: None (occurrence: None)
  Receive Date: 20050413
  Receipt Date: 20040311
  Transmission Date: 20051028
  Serious: Yes (Hospitalization, Other)
  Sender: FDA-Public Use
  Company Number: 2003-BP-10662BP

PATIENT
  Age: 67 Year
  Sex: Male

DRUGS (1)
  1. MOBIC [Suspect]
     Indication: OSTEOARTHRITIS
     Dosage: PO
     Route: 048
     Dates: start: 20021101, end: 20031201

REACTIONS (3)
  - ECCHYMOSIS [None]
  - EPISTAXIS [None]
  - THROMBOCYTOPENIA [None]
